FAERS Safety Report 16137816 (Version 1)
Quarter: 2019Q2

REPORT INFORMATION
  Report Type: Spontaneous
  Country: US (occurrence: US)
  Receive Date: 20190401
  Receipt Date: 20190401
  Transmission Date: 20190711
  Serious: No
  Sender: FDA-Public Use
  Company Number: US-GLAXOSMITHKLINE-US2019052649

PATIENT
  Age: 64 Year
  Sex: Female

DRUGS (2)
  1. OMEGA-3-ACID ETHYL ESTERS CAPSULE [Suspect]
     Active Substance: OMEGA-3-ACID ETHYL ESTERS
     Indication: BLOOD CHOLESTEROL INCREASED
     Dosage: UNK
     Route: 065
  2. LOVAZA [Suspect]
     Active Substance: OMEGA-3-ACID ETHYL ESTERS
     Indication: BLOOD CHOLESTEROL INCREASED
     Dosage: 4 G, QD
     Route: 065
     Dates: start: 2008, end: 201901

REACTIONS (5)
  - Anxiety [Unknown]
  - Malaise [Unknown]
  - Eructation [Unknown]
  - Insurance issue [Unknown]
  - Poverty [Unknown]

NARRATIVE: CASE EVENT DATE: 201903
